FAERS Safety Report 8232485-7 (Version None)
Quarter: 2012Q1

REPORT INFORMATION
  Report Type: 
  Country: None (occurrence: None)
  Receive Date: 20120323
  Receipt Date: 20120319
  Transmission Date: 20120608
  Serious: Yes (Death, Hospitalization)
  Sender: FDA-Public Use
  Company Number: PE-PFIZER INC-2012061190

PATIENT
  Age: 93 Year
  Sex: Female

DRUGS (2)
  1. XALATAN [Suspect]
     Indication: GLAUCOMA
     Dosage: 0.063 MG ONCE DAILY
     Route: 047
     Dates: start: 20020101
  2. COSOPT [Concomitant]
     Dosage: UNK
     Route: 047

REACTIONS (2)
  - PNEUMONIA [None]
  - CARDIAC ARREST [None]
